FAERS Safety Report 25393766 (Version 2)
Quarter: 2025Q3

REPORT INFORMATION
  Report Type: Spontaneous
  Country: IL (occurrence: IL)
  Receive Date: 20250604
  Receipt Date: 20250702
  Transmission Date: 20251021
  Serious: No
  Sender: NOVO NORDISK
  Company Number: IL-NOVOPROD-1442335

PATIENT
  Sex: Female

DRUGS (2)
  1. OZEMPIC [Suspect]
     Active Substance: SEMAGLUTIDE
     Indication: Neurosarcoidosis
     Route: 058
  2. OZEMPIC [Suspect]
     Active Substance: SEMAGLUTIDE
     Indication: Fluid retention
     Route: 058

REACTIONS (1)
  - Product use in unapproved indication [Unknown]
